FAERS Safety Report 9221433 (Version 1)
Quarter: 2013Q2

REPORT INFORMATION
  Report Type: Spontaneous
  Country: BR (occurrence: BR)
  Receive Date: 20130410
  Receipt Date: 20130410
  Transmission Date: 20140414
  Serious: Yes (Other)
  Sender: FDA-Public Use
  Company Number: PHHY2013BR031568

PATIENT
  Age: 8 Year
  Sex: Male

DRUGS (1)
  1. IMIPRAMINE [Suspect]
     Indication: DEPRESSION
     Dosage: 25 MG, DAILY

REACTIONS (4)
  - Dystonia [Recovered/Resolved]
  - Musculoskeletal discomfort [Recovered/Resolved]
  - Facial paresis [Recovered/Resolved]
  - Pain [Recovered/Resolved]
